FAERS Safety Report 6526470-0 (Version None)
Quarter: 2010Q1

REPORT INFORMATION
  Report Type: 
  Country: None (occurrence: None)
  Receive Date: 20100105
  Receipt Date: 20091228
  Transmission Date: 20100710
  Serious: Yes (Hospitalization, Other)
  Sender: FDA-Public Use
  Company Number: FR-JNJFOC-20091207351

PATIENT
  Age: 74 Year
  Sex: Male

DRUGS (11)
  1. DURAGESIC-100 [Suspect]
     Indication: BACK PAIN
     Route: 062
  2. DEPAKINE CHRONO [Concomitant]
  3. DUPHALAC [Concomitant]
  4. IXPRIM [Concomitant]
  5. LIORESAL [Concomitant]
  6. SORIATANE [Concomitant]
  7. ZOCOR [Concomitant]
  8. EUPRESSYL [Concomitant]
  9. KARDEGIC [Concomitant]
  10. NEXIUM [Concomitant]
  11. LOXEN [Concomitant]

REACTIONS (3)
  - OVERDOSE [None]
  - PNEUMONIA ASPIRATION [None]
  - SOMNOLENCE [None]
